FAERS Safety Report 12239370 (Version 1)
Quarter: 2016Q2

REPORT INFORMATION
  Report Type: Spontaneous
  Country: US (occurrence: US)
  Receive Date: 20160405
  Receipt Date: 20160405
  Transmission Date: 20160815
  Serious: No
  Sender: FDA-Public Use
  Company Number: 2013-002591 WARNER CHILCOTT

PATIENT
  Age: 57 Year
  Sex: Female
  Weight: 65.46 kg

DRUGS (9)
  1. FEMRING [Suspect]
     Active Substance: ESTRADIOL ACETATE
     Indication: ANGIOPATHY
     Route: 067
  2. LYSINE [Concomitant]
     Active Substance: LYSINE
  3. COLCRYS [Concomitant]
     Active Substance: COLCHICINE
  4. CALCIUM + VIT D [Concomitant]
     Active Substance: CALCIUM\VITAMIN D
  5. MULTIVIT [Concomitant]
     Active Substance: VITAMINS
  6. FOLVITE [Concomitant]
     Active Substance: FOLIC ACID
  7. AMBIEN [Concomitant]
     Active Substance: ZOLPIDEM TARTRATE
  8. FEMRING [Suspect]
     Active Substance: ESTRADIOL ACETATE
     Route: 067
  9. MOTRIN [Concomitant]
     Active Substance: IBUPROFEN

REACTIONS (7)
  - Irritability [Not Recovered/Not Resolved]
  - Drug ineffective [Not Recovered/Not Resolved]
  - Night sweats [Not Recovered/Not Resolved]
  - Crying [Not Recovered/Not Resolved]
  - Hyperhidrosis [Not Recovered/Not Resolved]
  - Hot flush [Not Recovered/Not Resolved]
  - Mood swings [Not Recovered/Not Resolved]

NARRATIVE: CASE EVENT DATE: 201308
